FAERS Safety Report 23314754 (Version 3)
Quarter: 2024Q1

REPORT INFORMATION
  Report Type: Spontaneous
  Country: DE (occurrence: DE)
  Receive Date: 20231219
  Receipt Date: 20240123
  Transmission Date: 20240410
  Serious: Yes (Other)
  Sender: FDA-Public Use
  Company Number: DE-BAXTER-2023BAX037080

PATIENT
  Age: 70 Year
  Sex: Female

DRUGS (27)
  1. ETOPOSIDE [Suspect]
     Active Substance: ETOPOSIDE
     Indication: Plasma cell myeloma
     Dosage: UNK, AS A PART OF DARA-KTD-PACE REGIMEN, FIRST
     Route: 065
  2. ETOPOSIDE [Suspect]
     Active Substance: ETOPOSIDE
     Dosage: UNK, AS A PART OF DARA-KTD-PACE REGIMEN, SECOND
     Route: 065
  3. ETOPOSIDE [Suspect]
     Active Substance: ETOPOSIDE
     Dosage: UNK, AS A PART OF DARA-KTD-PACE REGIMEN, THIRD
     Route: 065
  4. DOXORUBICIN [Suspect]
     Active Substance: DOXORUBICIN
     Indication: Plasma cell myeloma
     Dosage: UNK, AS A PART OF DARA-KTD-PACE REGIMEN, FIRST
     Route: 065
  5. DOXORUBICIN [Suspect]
     Active Substance: DOXORUBICIN
     Dosage: UNK, AS A PART OF DARA-KTD-PACE REGIMEN, SECOND
     Route: 065
  6. DOXORUBICIN [Suspect]
     Active Substance: DOXORUBICIN
     Dosage: UNK, AS A PART OF DARA-KTD-PACE REGIMEN, THIRD
     Route: 065
  7. DEXAMETHASONE [Suspect]
     Active Substance: DEXAMETHASONE
     Indication: Plasma cell myeloma
     Dosage: UNK, AS A PART OF DARA-KTD-PACE REGIMEN, FIRST
     Route: 065
  8. DEXAMETHASONE [Suspect]
     Active Substance: DEXAMETHASONE
     Dosage: UNK, AS A PART OF DARA-KTD-PACE REGIMEN, SECOND
     Route: 065
  9. DEXAMETHASONE [Suspect]
     Active Substance: DEXAMETHASONE
     Dosage: UNK, AS A PART OF DARA-KTD-PACE REGIMEN, THIRD
     Route: 065
  10. DARATUMUMAB [Suspect]
     Active Substance: DARATUMUMAB
     Indication: Plasma cell myeloma
     Dosage: UNK, AS A PART OF DARA-KTD-PACE REGIMEN, FIRST
     Route: 065
  11. DARATUMUMAB [Suspect]
     Active Substance: DARATUMUMAB
     Dosage: UNK, AS A PART OF DARA-KTD-PACE REGIMEN, SECOND
     Route: 065
  12. DARATUMUMAB [Suspect]
     Active Substance: DARATUMUMAB
     Dosage: UNK, AS A PART OF DARA-KTD-PACE REGIMEN, THIRD
     Route: 065
  13. TECVAYLI [Suspect]
     Active Substance: TECLISTAMAB-CQYV
     Indication: Plasma cell myeloma
     Dosage: UNK
     Route: 065
  14. CARFILZOMIB [Suspect]
     Active Substance: CARFILZOMIB
     Indication: Plasma cell myeloma
     Dosage: UNK, AS A PART OF DARA-KTD-PACE REGIMEN, FIRST
     Route: 065
  15. CARFILZOMIB [Suspect]
     Active Substance: CARFILZOMIB
     Dosage: UNK, AS A PART OF DARA-KTD-PACE REGIMEN, SECOND
     Route: 065
  16. CARFILZOMIB [Suspect]
     Active Substance: CARFILZOMIB
     Dosage: UNK, AS A PART OF DARA-KTD-PACE REGIMEN, THIRD
     Route: 065
  17. MELOXICAM [Suspect]
     Active Substance: MELOXICAM
     Indication: Plasma cell myeloma
     Dosage: UNK
     Route: 065
  18. THALIDOMIDE [Suspect]
     Active Substance: THALIDOMIDE
     Indication: Plasma cell myeloma
     Dosage: UNK, AS A PART OF DARA-KTD-PACE REGIMEN, FIRST
     Route: 065
  19. THALIDOMIDE [Suspect]
     Active Substance: THALIDOMIDE
     Dosage: UNK, AS A PART OF DARA-KTD-PACE REGIMEN, SECOND
     Route: 065
  20. THALIDOMIDE [Suspect]
     Active Substance: THALIDOMIDE
     Dosage: UNK, AS A PART OF DARA-KTD-PACE REGIMEN, THIRD
     Route: 065
  21. PLATINOL [Suspect]
     Active Substance: CISPLATIN
     Indication: Plasma cell myeloma
     Dosage: UNK, AS A PART OF DARA-KTD-PACE REGIMEN, FIRST
     Route: 065
  22. PLATINOL [Suspect]
     Active Substance: CISPLATIN
     Dosage: UNK, AS A PART OF DARA-KTD-PACE REGIMEN, SECOND
     Route: 065
  23. PLATINOL [Suspect]
     Active Substance: CISPLATIN
     Dosage: UNK, AS A PART OF DARA-KTD-PACE REGIMEN, THIRD
     Route: 065
  24. CYCLOPHOSPHAMIDE [Suspect]
     Active Substance: CYCLOPHOSPHAMIDE
     Indication: Plasma cell myeloma
     Dosage: UNK, AS A PART OF DARA-KTD-PACE REGIMEN, FIRST
     Route: 065
  25. CYCLOPHOSPHAMIDE [Suspect]
     Active Substance: CYCLOPHOSPHAMIDE
     Dosage: UNK, AS A PART OF DARA-KTD-PACE REGIMEN, SECOND
     Route: 065
  26. CYCLOPHOSPHAMIDE [Suspect]
     Active Substance: CYCLOPHOSPHAMIDE
     Dosage: UNK, AS A PART OF DARA-KTD-PACE REGIMEN, THIRD
     Route: 065
  27. TECLISTAMAB [Suspect]
     Active Substance: TECLISTAMAB
     Indication: Plasma cell myeloma
     Dosage: UNK
     Route: 065

REACTIONS (4)
  - Cytokine release syndrome [Recovered/Resolved]
  - Intervertebral discitis [Unknown]
  - White blood cell count increased [Unknown]
  - Respiratory tract infection [Unknown]
